FAERS Safety Report 7005626-7 (Version None)
Quarter: 2010Q3

REPORT INFORMATION
  Report Type: 
  Country: None (occurrence: None)
  Receive Date: 20100921
  Receipt Date: 20100916
  Transmission Date: 20110219
  Serious: Yes (Congenital Anomaly, Other)
  Sender: FDA-Public Use
  Company Number: A0882112A

PATIENT
  Sex: Male

DRUGS (3)
  1. LAMICTAL [Suspect]
     Indication: EPILEPSY
  2. QVAR 40 [Concomitant]
  3. FLONASE [Concomitant]

REACTIONS (2)
  - CHORDEE [None]
  - DRUG EXPOSURE DURING PREGNANCY [None]
